FAERS Safety Report 17819719 (Version 6)
Quarter: 2021Q2

REPORT INFORMATION
  Report Type: Report from Study
  Country: US (occurrence: US)
  Receive Date: 20200524
  Receipt Date: 20210507
  Transmission Date: 20210716
  Serious: No
  Sender: FDA-Public Use
  Company Number: NVSC2020US141191

PATIENT
  Age: 31 Year
  Sex: Female

DRUGS (1)
  1. GILENYA [Suspect]
     Active Substance: FINGOLIMOD HYDROCHLORIDE
     Indication: MULTIPLE SCLEROSIS
     Dosage: 0.5 MG, QD
     Route: 048

REACTIONS (10)
  - Visual impairment [Unknown]
  - Nausea [Unknown]
  - Sleep disorder [Unknown]
  - Headache [Recovered/Resolved]
  - Amnesia [Unknown]
  - Lethargy [Unknown]
  - COVID-19 [Unknown]
  - SARS-CoV-2 test positive [Unknown]
  - Central nervous system lesion [Unknown]
  - Hypogeusia [Unknown]

NARRATIVE: CASE EVENT DATE: 202007
